FAERS Safety Report 11849437 (Version 5)
Quarter: 2019Q1

REPORT INFORMATION
  Report Type: Spontaneous
  Country: GB (occurrence: GB)
  Receive Date: 20151218
  Receipt Date: 20190207
  Transmission Date: 20190417
  Serious: Yes (Death, Congenital Anomaly, Other)
  Sender: FDA-Public Use
  Company Number: GB-MYLANLABS-2015M1043849

PATIENT
  Sex: Female
  Weight: .26 kg

DRUGS (15)
  1. CYCLIZINE [Suspect]
     Active Substance: CYCLIZINE
     Indication: VOMITING
     Dosage: 50 MG, TID (DOSAGE FORM: UNSPECIFIED, MOTHER DOSING)
     Route: 064
     Dates: start: 20140901, end: 20141030
  2. DARUNAVIR [Suspect]
     Active Substance: DARUNAVIR
     Indication: HIV INFECTION
     Dosage: 800 MG, QD
     Route: 064
     Dates: start: 201407, end: 20141201
  3. RITONAVIR. [Suspect]
     Active Substance: RITONAVIR
     Indication: HIV INFECTION
     Dosage: 100 MG, QD
     Route: 064
     Dates: start: 201407, end: 20141201
  4. NORVIR [Suspect]
     Active Substance: RITONAVIR
     Dosage: 100 MILLIGRAM, QD
     Route: 064
     Dates: start: 201407, end: 20171201
  5. VALACICLOVIR [Suspect]
     Active Substance: VALACYCLOVIR HYDROCHLORIDE
     Indication: HERPES VIRUS INFECTION
     Dosage: 500 MG, BID (DOSAGE FORM: UNSPECIFIED, MOTHER DOSING)
     Route: 064
     Dates: start: 20140918, end: 20141201
  6. MIRTAZAPINE. [Suspect]
     Active Substance: MIRTAZAPINE
     Indication: DEPRESSION
     Dosage: 30 MG, QD (DOSAGE FORM: UNSPECIFIED, MOTHER DOSING)
     Route: 064
     Dates: start: 201407, end: 20141201
  7. NORVIR [Suspect]
     Active Substance: RITONAVIR
     Dosage: 100 MILLIGRAM, QD
     Route: 064
     Dates: start: 20080117
  8. MIRTAZAPINE. [Suspect]
     Active Substance: MIRTAZAPINE
     Dosage: 1 DOSAGE FORM, QD
     Route: 064
     Dates: start: 201407, end: 20141201
  9. NORVIR [Suspect]
     Active Substance: RITONAVIR
     Indication: HIV INFECTION
     Dosage: 100 MG, QD (DOSAGE FORM: UNSPECIFIED, MOTHER DOSING)
     Route: 064
     Dates: start: 200801
  10. NORVIR [Suspect]
     Active Substance: RITONAVIR
     Dosage: 4 DOSAGE FORM, QD
     Route: 064
     Dates: start: 201204
  11. KALETRA [Suspect]
     Active Substance: LOPINAVIR\RITONAVIR
     Indication: HIV INFECTION
     Dosage: UNK
     Route: 064
     Dates: start: 200809, end: 201204
  12. MIRTAZAPINE. [Suspect]
     Active Substance: MIRTAZAPINE
     Dosage: 30 MILLIGRAM, QD
     Route: 064
     Dates: start: 201406
  13. TRUVADA [Suspect]
     Active Substance: EMTRICITABINE\TENOFOVIR DISOPROXIL FUMARATE
     Indication: HIV INFECTION
     Dosage: 1 DF, QD
     Route: 064
     Dates: start: 201407, end: 20141201
  14. TRUVADA [Suspect]
     Active Substance: EMTRICITABINE\TENOFOVIR DISOPROXIL FUMARATE
     Dosage: 1 DOSAGE FORM, QD
     Route: 064
     Dates: start: 20080117
  15. KALETRA [Suspect]
     Active Substance: LOPINAVIR\RITONAVIR
     Indication: MATERNAL EXPOSURE TIMING UNSPECIFIED
     Dosage: UNK
     Route: 064

REACTIONS (5)
  - Spina bifida [Fatal]
  - Cerebral ventricle dilatation [Fatal]
  - Foetal death [Fatal]
  - Skull malformation [Fatal]
  - Foetal exposure during pregnancy [Recovered/Resolved]

NARRATIVE: CASE EVENT DATE: 20141126
